FAERS Safety Report 18915460 (Version 7)
Quarter: 2021Q2

REPORT INFORMATION
  Report Type: Spontaneous
  Country: US (occurrence: US)
  Receive Date: 20210219
  Receipt Date: 20210618
  Transmission Date: 20210717
  Serious: No
  Sender: FDA-Public Use
  Company Number: US-GLAXOSMITHKLINE-US2021AMR047070

PATIENT
  Sex: Female

DRUGS (5)
  1. ZEJULA [Suspect]
     Active Substance: NIRAPARIB
     Dosage: 100 MG, QD
     Route: 048
  2. ZEJULA [Suspect]
     Active Substance: NIRAPARIB
     Dosage: 100 MG, QD
     Route: 048
  3. ZEJULA [Suspect]
     Active Substance: NIRAPARIB
     Dosage: 100 MG, QD
     Route: 048
     Dates: start: 20210315
  4. ZEJULA [Suspect]
     Active Substance: NIRAPARIB
     Dosage: 100 MG, QD
     Dates: start: 20210209
  5. ZEJULA [Suspect]
     Active Substance: NIRAPARIB
     Indication: FALLOPIAN TUBE CANCER
     Dosage: 200 MG, QD
     Dates: start: 20210208

REACTIONS (16)
  - Constipation [Recovering/Resolving]
  - Fall [Unknown]
  - Pruritus [Recovering/Resolving]
  - Balance disorder [Unknown]
  - Nausea [Recovered/Resolved]
  - Dizziness [Not Recovered/Not Resolved]
  - Abdominal discomfort [Not Recovered/Not Resolved]
  - Mobility decreased [Unknown]
  - Joint injury [Unknown]
  - Blood pressure diastolic increased [Unknown]
  - Exposure to toxic agent [Recovering/Resolving]
  - Memory impairment [Unknown]
  - Dyspepsia [Unknown]
  - Blood pressure increased [Unknown]
  - Accidental overdose [Unknown]
  - Malaise [Unknown]
